FAERS Safety Report 21934252 (Version 1)
Quarter: 2023Q1

REPORT INFORMATION
  Report Type: Spontaneous
  Country: ES (occurrence: ES)
  Receive Date: 20230201
  Receipt Date: 20230201
  Transmission Date: 20230417
  Serious: Yes (Other)
  Sender: FDA-Public Use
  Company Number: ES-BAYER-2023P006834

PATIENT
  Sex: Female

DRUGS (1)
  1. EYLEA [Suspect]
     Active Substance: AFLIBERCEPT
     Indication: Product used for unknown indication
     Dosage: UNK, SOLUTION FOR INJECTION IN PRE-FILLED SYRINGE, 40MG/ML
     Route: 031
     Dates: start: 20221215, end: 20221215

REACTIONS (4)
  - Keratic precipitates [Unknown]
  - Retinal vascular occlusion [Unknown]
  - Macular oedema [Unknown]
  - Iridocyclitis [Unknown]

NARRATIVE: CASE EVENT DATE: 20221231
